FAERS Safety Report 8465643-7 (Version None)
Quarter: 2012Q2

REPORT INFORMATION
  Report Type: 
  Country: None (occurrence: None)
  Receive Date: 20120621
  Receipt Date: 20120621
  Transmission Date: 20120825
  Serious: Yes (Hospitalization)
  Sender: FDA-Public Use
  Company Number: None

PATIENT
  Sex: Male
  Weight: 89.13 kg

DRUGS (3)
  1. DEXAMETHASONE [Concomitant]
  2. WARFARIN SODIUM [Concomitant]
  3. CISPLATIN [Suspect]
     Dosage: 199 MG

REACTIONS (13)
  - HICCUPS [None]
  - HYPONATRAEMIA [None]
  - PROTEINURIA [None]
  - DIABETES MELLITUS [None]
  - OEDEMA PERIPHERAL [None]
  - WEIGHT INCREASED [None]
  - BLOOD CREATININE INCREASED [None]
  - RENAL FAILURE [None]
  - ATRIAL FIBRILLATION [None]
  - DYSPNOEA [None]
  - CARDIAC FAILURE [None]
  - ABDOMINAL DISTENSION [None]
  - FLUID RETENTION [None]
